FAERS Safety Report 20666495 (Version 1)
Quarter: 2022Q2

REPORT INFORMATION
  Report Type: Spontaneous
  Country: US (occurrence: US)
  Receive Date: 20220403
  Receipt Date: 20220403
  Transmission Date: 20220721
  Serious: No
  Sender: FDA-Public Use
  Company Number: US-SANOFI-01038155

PATIENT
  Age: 51 Year
  Sex: Male

DRUGS (1)
  1. TOUJEO [Suspect]
     Active Substance: INSULIN GLARGINE
     Indication: Type 2 diabetes mellitus
     Dosage: 14 U, BID, DRUG STRUCTURE DOSAGE : 14 UNITS DRUG INTERVAL DOSAGE : TWICE DAILY DRUG TREATMENT DURATI

REACTIONS (1)
  - Inappropriate schedule of product administration [Unknown]
